FAERS Safety Report 6092871-0 (Version None)
Quarter: 2009Q1

REPORT INFORMATION
  Report Type: 
  Country: None (occurrence: None)
  Receive Date: 20090225
  Receipt Date: 20090220
  Transmission Date: 20090719
  Serious: Yes (Other)
  Sender: FDA-Public Use
  Company Number: US-B.I. PHARMACEUTICALS,INC./RIDGEFIELD-2009-BP-02119BP

PATIENT
  Sex: Male

DRUGS (6)
  1. SPIRIVA [Suspect]
     Indication: QUALITY OF LIFE DECREASED
     Dosage: 18MCG
     Route: 055
     Dates: start: 20081201
  2. PLAVIX [Concomitant]
     Indication: CORONARY ARTERY STENOSIS
  3. LIPITOR [Concomitant]
     Indication: CORONARY ARTERY STENOSIS
  4. ASTELIN [Concomitant]
     Indication: RHINITIS PROPHYLAXIS
  5. ADVAIR HFA [Concomitant]
     Indication: QUALITY OF LIFE DECREASED
  6. ZANTAC [Concomitant]
     Indication: GASTROOESOPHAGEAL REFLUX DISEASE

REACTIONS (5)
  - CHEST DISCOMFORT [None]
  - DYSPNOEA [None]
  - HYPERSOMNIA [None]
  - NASOPHARYNGITIS [None]
  - RHINORRHOEA [None]
